FAERS Safety Report 13054529 (Version 1)
Quarter: 2016Q4

REPORT INFORMATION
  Report Type: Spontaneous
  Country: FR (occurrence: FR)
  Receive Date: 20161222
  Receipt Date: 20161222
  Transmission Date: 20170207
  Serious: Yes (Hospitalization)
  Sender: FDA-Public Use
  Company Number: FR-TEVA-721271ROM

PATIENT
  Age: 24 Year
  Sex: Female

DRUGS (2)
  1. OPTIMIZETTE 75 MCG [Suspect]
     Active Substance: DESOGESTREL
     Indication: CONTRACEPTION
     Dosage: 75 MICROGRAM DAILY;
     Route: 048
     Dates: start: 201503, end: 20151228
  2. LEELOO 0.1 MG/0.02 MG [Suspect]
     Active Substance: ETHINYL ESTRADIOL\LEVONORGESTREL
     Indication: CONTRACEPTION
     Route: 048
     Dates: start: 20151229, end: 201601

REACTIONS (5)
  - Pelvic pain [Recovered/Resolved]
  - Vaginal discharge [None]
  - Cyst rupture [Recovered/Resolved]
  - Hyperthermia [None]
  - Fallopian tube disorder [None]

NARRATIVE: CASE EVENT DATE: 201512
